FAERS Safety Report 9144346 (Version 1)
Quarter: 2013Q1

REPORT INFORMATION
  Report Type: Spontaneous
  Country: AT (occurrence: AT)
  Receive Date: 20130306
  Receipt Date: 20130306
  Transmission Date: 20140127
  Serious: Yes (Hospitalization)
  Sender: FDA-Public Use
  Company Number: AT-ELI_LILLY_AND_COMPANY-AT201302009598

PATIENT
  Sex: Male
  Weight: 84 kg

DRUGS (4)
  1. EFIENT [Suspect]
     Indication: ANGINA PECTORIS
     Dosage: 60 MG, SINGLE LOADING DOSE
     Route: 048
     Dates: start: 20101112, end: 20101112
  2. EFIENT [Suspect]
     Dosage: 10 MG, QD
     Route: 048
     Dates: start: 20101113, end: 20110212
  3. ASPIRIN [Concomitant]
     Dosage: 300-500MG LOADING DOSE
  4. ASPIRIN [Concomitant]
     Dosage: 100 MG, QD

REACTIONS (1)
  - Acute coronary syndrome [Recovered/Resolved]
